FAERS Safety Report 6066194-X (Version None)
Quarter: 2009Q1

REPORT INFORMATION
  Report Type: 
  Country: None (occurrence: None)
  Receive Date: 20090205
  Receipt Date: 20090127
  Transmission Date: 20090719
  Serious: Yes (Other)
  Sender: FDA-Public Use
  Company Number: PHEH2009US01272

PATIENT
  Age: 68 Year
  Sex: Female

DRUGS (4)
  1. ESTRADERM [Suspect]
     Dosage: 0.05 UNK, UNK
     Route: 062
     Dates: start: 19890101
  2. ESTRADERM [Suspect]
     Dosage: UNK
  3. ESTRADERM [Suspect]
     Dosage: UNK
  4. ESTRADERM [Suspect]
     Dosage: UNK

REACTIONS (9)
  - APPLICATION SITE PAIN [None]
  - BLOOD CHOLESTEROL INCREASED [None]
  - BREAST CYST [None]
  - CYSTITIS [None]
  - KNEE ARTHROPLASTY [None]
  - PH BODY FLUID ABNORMAL [None]
  - PLATELET COUNT INCREASED [None]
  - SURGERY [None]
  - TENDON RUPTURE [None]
